FAERS Safety Report 4650189-4 (Version None)
Quarter: 2005Q2

REPORT INFORMATION
  Report Type: 
  Country: None (occurrence: None)
  Receive Date: 20050428
  Receipt Date: 20050419
  Transmission Date: 20051028
  Serious: Yes (Other)
  Sender: FDA-Public Use
  Company Number: 2005062898

PATIENT
  Age: 49 Year
  Sex: Male

DRUGS (1)
  1. BEXTRA [Suspect]
     Indication: BACK PAIN
     Dosage: (20 MG, AS NEEDED), ORAL
     Route: 048
     Dates: start: 20040101

REACTIONS (10)
  - ACNE [None]
  - BLISTER [None]
  - CHEST PAIN [None]
  - DRUG INEFFECTIVE [None]
  - PHARMACEUTICAL PRODUCT COMPLAINT [None]
  - SCAR [None]
  - SKIN EXFOLIATION [None]
  - SKIN IRRITATION [None]
  - SKIN LESION [None]
  - SKIN REACTION [None]
